FAERS Safety Report 6403810-4 (Version None)
Quarter: 2009Q4

REPORT INFORMATION
  Report Type: 
  Country: None (occurrence: None)
  Receive Date: 20091013
  Receipt Date: 20090930
  Transmission Date: 20100525
  Serious: Yes (Other)
  Sender: FDA-Public Use
  Company Number: 2009AP003779

PATIENT
  Age: 37 Year
  Sex: Female

DRUGS (2)
  1. GABAPENTIN [Suspect]
     Indication: PROCEDURAL PAIN
     Dosage: 300 MG; TID PO, 300 MG; CAP; PO; TID
     Route: 048
     Dates: start: 20090911, end: 20090912
  2. OXYCOCET (OXYCOCET) [Concomitant]

REACTIONS (4)
  - RASH ERYTHEMATOUS [None]
  - RASH GENERALISED [None]
  - RASH MACULO-PAPULAR [None]
  - RASH PRURITIC [None]
